FAERS Safety Report 8521043-2 (Version None)
Quarter: 2012Q3

REPORT INFORMATION
  Report Type: 
  Country: None (occurrence: None)
  Receive Date: 20120719
  Receipt Date: 20120717
  Transmission Date: 20120928
  Serious: Yes (Hospitalization, Other)
  Sender: FDA-Public Use
  Company Number: US-ROCHE-1032791

PATIENT
  Sex: Female

DRUGS (1)
  1. NUTROPIN [Suspect]
     Indication: HYPOPITUITARISM
     Route: 058
     Dates: start: 20120302

REACTIONS (6)
  - BRAIN NEOPLASM [None]
  - CONJUNCTIVITIS INFECTIVE [None]
  - GALLBLADDER OPERATION [None]
  - ASTHMA [None]
  - EAR INFECTION [None]
  - NASOPHARYNGITIS [None]
